FAERS Safety Report 10044500 (Version 1)
Quarter: 2014Q1

REPORT INFORMATION
  Report Type: Spontaneous
  Country: US (occurrence: US)
  Receive Date: 20140328
  Receipt Date: 20140328
  Transmission Date: 20141002
  Serious: No
  Sender: FDA-Public Use
  Company Number: US-PFIZER INC-2014086958

PATIENT
  Age: 79 Year
  Sex: Female

DRUGS (12)
  1. ACCUPRIL [Suspect]
     Dosage: UNK
  2. PROTONIX [Suspect]
     Dosage: UNK
  3. TRAMADOL HCL [Suspect]
     Dosage: UNK
  4. ANTIVERT [Suspect]
     Dosage: UNK
  5. ULTRAM [Suspect]
     Dosage: UNK
  6. IMDUR [Suspect]
     Dosage: UNK
  7. DARVOCET [Suspect]
     Dosage: UNK
  8. ADVAIR [Suspect]
     Dosage: UNK
  9. PERCODAN [Suspect]
     Dosage: UNK
  10. LEVAQUIN [Suspect]
     Dosage: UNK
  11. CODEINE [Suspect]
     Dosage: UNK
  12. IODINE [Suspect]
     Dosage: UNK

REACTIONS (1)
  - Drug hypersensitivity [Unknown]
